FAERS Safety Report 4784368-2 (Version None)
Quarter: 2005Q3

REPORT INFORMATION
  Report Type: 
  Country: None (occurrence: None)
  Receive Date: 20050929
  Receipt Date: 20050929
  Transmission Date: 20060218
  Serious: No
  Sender: FDA-Public Use
  Company Number: None

PATIENT
  Age: 78 Year
  Sex: Male
  Weight: 65 kg

DRUGS (1)
  1. CANCIDAS [Suspect]
     Indication: FUNGAEMIA
     Dosage: INTRAVENOUS;50.0
     Route: 042
     Dates: start: 20050916, end: 20050917

REACTIONS (1)
  - PULMONARY OEDEMA [None]
